FAERS Safety Report 9693392 (Version 1)
Quarter: 2013Q4

REPORT INFORMATION
  Report Type: Spontaneous
  Country: US (occurrence: US)
  Receive Date: 20131118
  Receipt Date: 20131118
  Transmission Date: 20140711
  Serious: No
  Sender: FDA-Public Use
  Company Number: US-BAYER-2013-136922

PATIENT
  Sex: Female
  Weight: 77.1 kg

DRUGS (2)
  1. CITRACAL PLUS MAGNESIUM [Suspect]
     Dosage: 2 DF, BID
     Route: 048
     Dates: start: 20131102, end: 20131107
  2. ALEVE CAPLET [Suspect]

REACTIONS (3)
  - Tongue haemorrhage [Recovered/Resolved]
  - Nausea [Recovered/Resolved]
  - Vomiting [Recovered/Resolved]
